FAERS Safety Report 4629349-4 (Version None)
Quarter: 2005Q2

REPORT INFORMATION
  Report Type: 
  Country: None (occurrence: None)
  Receive Date: 20050404
  Receipt Date: 20050317
  Transmission Date: 20051028
  Serious: Yes (Death)
  Sender: FDA-Public Use
  Company Number: B0375015A

PATIENT
  Age: 65 Year
  Sex: Female

DRUGS (4)
  1. LITHIUM CARBONATE [Suspect]
     Indication: DEPRESSION
  2. CLOMIPRAMINE HCL [Suspect]
     Indication: DEPRESSION
  3. FLUVOXAMINE MALEATE [Suspect]
     Indication: DEPRESSION
  4. METHOTRIMEPRAZINE (METHOTRIMEPRAZINE) [Suspect]
     Indication: DEPRESSION

REACTIONS (6)
  - CONJUNCTIVAL HYPERAEMIA [None]
  - CONTUSION [None]
  - EXCORIATION [None]
  - NEUROLEPTIC MALIGNANT SYNDROME [None]
  - SEROTONIN SYNDROME [None]
  - TRYPTASE INCREASED [None]
